FAERS Safety Report 16007922 (Version 1)
Quarter: 2019Q1

REPORT INFORMATION
  Report Type: Report from Study
  Country: US (occurrence: US)
  Receive Date: 20190226
  Receipt Date: 20190226
  Transmission Date: 20190418
  Serious: No
  Sender: FDA-Public Use
  Company Number: US-ALEXION PHARMACEUTICALS INC.-A201902653

PATIENT
  Sex: Female

DRUGS (1)
  1. SOLIRIS [Suspect]
     Active Substance: ECULIZUMAB
     Indication: PRODUCT USED FOR UNKNOWN INDICATION
     Route: 065

REACTIONS (10)
  - Mean cell haemoglobin concentration increased [Unknown]
  - Fatigue [Unknown]
  - White blood cell count decreased [Unknown]
  - Red cell distribution width decreased [Unknown]
  - Specific gravity urine abnormal [Unknown]
  - Blood lactate dehydrogenase decreased [Unknown]
  - Blood sodium decreased [Unknown]
  - Glomerular filtration rate increased [Unknown]
  - Mean platelet volume decreased [Unknown]
  - Globulins decreased [Unknown]

NARRATIVE: CASE EVENT DATE: 20181128
